FAERS Safety Report 8543786-7 (Version None)
Quarter: 2012Q3

REPORT INFORMATION
  Report Type: 
  Country: None (occurrence: None)
  Receive Date: 20120727
  Receipt Date: 20120723
  Transmission Date: 20120928
  Serious: Yes (Other)
  Sender: FDA-Public Use
  Company Number: US-PFIZER INC-2012178102

PATIENT
  Sex: Male

DRUGS (4)
  1. LYRICA [Suspect]
     Indication: PAIN IN EXTREMITY
     Dosage: 50 MG, 2X/DAY
     Route: 048
     Dates: start: 20120401
  2. LYRICA [Suspect]
     Indication: ARTHRALGIA
  3. ADDERALL 5 [Concomitant]
     Dosage: UNK
  4. LYRICA [Suspect]

REACTIONS (4)
  - SKIN LESION [None]
  - SKIN DISORDER [None]
  - VASCULAR RUPTURE [None]
  - CONTUSION [None]
